FAERS Safety Report 9380315 (Version 1)
Quarter: 2013Q3

REPORT INFORMATION
  Report Type: Spontaneous
  Country: US (occurrence: None)
  Receive Date: 20130701
  Receipt Date: 20130701
  Transmission Date: 20140515
  Serious: No
  Sender: FDA-Public Use
  Company Number: None

PATIENT
  Age: 79 Year
  Sex: Male

DRUGS (1)
  1. STIVARGA 40 MG BAYER [Suspect]
     Indication: COLON CANCER
     Dosage: 21DAY ON ..   OFF
     Route: 048
     Dates: start: 20130430, end: 201306

REACTIONS (3)
  - Burning sensation [None]
  - Skin exfoliation [None]
  - Drug ineffective [None]
